FAERS Safety Report 5419549-8 (Version None)
Quarter: 2007Q3

REPORT INFORMATION
  Report Type: 
  Country: None (occurrence: None)
  Receive Date: 20070820
  Receipt Date: 20070816
  Transmission Date: 20080115
  Serious: Yes (Hospitalization)
  Sender: FDA-Public Use
  Company Number: US-BRISTOL-MYERS SQUIBB COMPANY-13879713

PATIENT
  Age: 72 Year
  Sex: Female
  Weight: 85 kg

DRUGS (23)
  1. CARBOPLATIN [Suspect]
     Indication: OVARIAN CANCER
  2. PACLITAXEL [Suspect]
     Indication: OVARIAN CANCER
  3. SKELAXIN [Concomitant]
     Route: 048
     Dates: start: 20041119
  4. PREVACID [Concomitant]
     Indication: GASTROOESOPHAGEAL REFLUX DISEASE
     Route: 048
     Dates: start: 20041119
  5. HYDROCHLOROTHIAZIDE [Concomitant]
     Indication: HYPERTENSION
     Route: 048
     Dates: start: 20050602
  6. CLONAZEPAM [Concomitant]
     Indication: ANXIETY
     Route: 048
     Dates: start: 20061022
  7. CARTIA XT [Concomitant]
     Indication: HYPERTENSION
     Route: 048
     Dates: start: 20041119
  8. LIPITOR [Concomitant]
     Indication: BLOOD CHOLESTEROL INCREASED
     Route: 048
     Dates: start: 20050816
  9. TYLENOL #3 [Concomitant]
     Indication: ARTHRITIS
     Route: 048
     Dates: start: 20050124
  10. TRAMADOL HCL [Concomitant]
     Indication: PELVIC PAIN
     Route: 048
     Dates: start: 20041119
  11. POLYCARBOPHIL CALCIUM [Concomitant]
     Indication: CONSTIPATION
     Route: 048
     Dates: start: 20061220
  12. LEVOTHYROXINE SODIUM [Concomitant]
     Indication: HYPOTHYROIDISM
     Route: 048
     Dates: start: 20041119
  13. DOXEPIN HCL [Concomitant]
     Indication: SLEEP DISORDER
     Route: 048
     Dates: start: 20070622
  14. MICARDIS [Concomitant]
     Indication: HYPERTENSION
     Route: 048
     Dates: start: 20070119
  15. SLOW FE [Concomitant]
     Indication: ANAEMIA OF MALIGNANT DISEASE
     Route: 048
     Dates: start: 20070628
  16. PERCOCET [Concomitant]
     Indication: PAIN
     Route: 048
     Dates: start: 20070626
  17. BACTRIM DS [Concomitant]
     Indication: URINARY TRACT INFECTION
     Route: 048
     Dates: start: 20070626
  18. DECADRON [Concomitant]
     Indication: PREMEDICATION
     Route: 048
     Dates: start: 20070702
  19. DECADRON [Concomitant]
     Route: 042
     Dates: start: 20070703
  20. COMPAZINE [Concomitant]
     Indication: NAUSEA
     Route: 048
     Dates: start: 20070703
  21. BENADRYL [Concomitant]
     Indication: PREMEDICATION
     Route: 042
     Dates: start: 20070703
  22. CIMETIDINE HCL [Concomitant]
     Indication: PREMEDICATION
     Route: 042
     Dates: start: 20070703
  23. ALOXI [Concomitant]
     Indication: PREMEDICATION
     Route: 042
     Dates: start: 20070703

REACTIONS (1)
  - DEHYDRATION [None]
